FAERS Safety Report 9500196 (Version 1)
Quarter: 2013Q3

REPORT INFORMATION
  Report Type: Spontaneous
  Country: US (occurrence: None)
  Receive Date: 20130904
  Receipt Date: 20130904
  Transmission Date: 20140515
  Serious: Yes (Other)
  Sender: FDA-Public Use
  Company Number: None

PATIENT
  Age: 14 Year
  Sex: Male
  Weight: 46.4 kg

DRUGS (1)
  1. NORDITROPIN GROWTH HORMONE [Suspect]
     Indication: GROWTH HORMONE DEFICIENCY
     Route: 058
     Dates: start: 20130313, end: 20130828

REACTIONS (2)
  - Medulloblastoma [None]
  - Neoplasm recurrence [None]
